FAERS Safety Report 8256011-1 (Version None)
Quarter: 2012Q2

REPORT INFORMATION
  Report Type: 
  Country: None (occurrence: None)
  Receive Date: 20120403
  Receipt Date: 20120326
  Transmission Date: 20120825
  Serious: Yes (Hospitalization, Other)
  Sender: FDA-Public Use
  Company Number: US-BAYER-2012-014457

PATIENT
  Age: 40 Year
  Sex: Female
  Weight: 120.64 kg

DRUGS (1)
  1. MIRENA [Suspect]
     Indication: CONTRACEPTION
     Dosage: 20 ?G/D, CONT
     Route: 015
     Dates: start: 20101210

REACTIONS (3)
  - PAIN [None]
  - DEVICE DISLOCATION [None]
  - UTERINE HAEMORRHAGE [None]
